FAERS Safety Report 8582729 (Version 2)
Quarter: 2013Q2

REPORT INFORMATION
  Report Type: Spontaneous
  Country: US (occurrence: US)
  Receive Date: 20120529
  Receipt Date: 20130603
  Transmission Date: 20140414
  Serious: Yes (Hospitalization)
  Sender: FDA-Public Use
  Company Number: US-PFIZER INC-2012124778

PATIENT
  Age: 50 Year
  Sex: Female
  Weight: 122 kg

DRUGS (4)
  1. EFFEXOR XR [Suspect]
     Indication: DEPRESSION
     Dosage: 75 MG, DAILY
     Dates: start: 2012
  2. EFFEXOR XR [Suspect]
     Indication: ANXIETY
  3. LYRICA [Suspect]
     Indication: FIBROMYALGIA
     Dosage: 150 MG, UNK
     Dates: start: 2012
  4. LEVEMIR [Concomitant]
     Indication: DIABETES MELLITUS
     Dosage: UNK, 2X/DAY

REACTIONS (5)
  - Pneumonia [Unknown]
  - Dysphagia [Unknown]
  - Cough [Unknown]
  - Oral candidiasis [Unknown]
  - Pain [Not Recovered/Not Resolved]
